FAERS Safety Report 6112387-2 (Version None)
Quarter: 2009Q1

REPORT INFORMATION
  Report Type: 
  Country: None (occurrence: None)
  Receive Date: 20090311
  Receipt Date: 20090311
  Transmission Date: 20090719
  Serious: Yes (Disabling)
  Sender: FDA-Public Use
  Company Number: None

PATIENT
  Age: 91 Year
  Sex: Female
  Weight: 51.2565 kg

DRUGS (1)
  1. ISOSORBIDE 30MG.TABLET ETHEX GRP [Suspect]
     Indication: CARDIAC DISORDER
     Dosage: 30 MG. ONCE DAILY ORALLY BOUGHT SEPT. 4, 2008
     Route: 048
     Dates: start: 20080905, end: 20081005

REACTIONS (8)
  - ABDOMINAL PAIN UPPER [None]
  - CONFUSIONAL STATE [None]
  - DEPRESSION [None]
  - DISORIENTATION [None]
  - GENERAL PHYSICAL HEALTH DETERIORATION [None]
  - INCORRECT DOSE ADMINISTERED [None]
  - MENTAL DISORDER [None]
  - PRODUCT QUALITY ISSUE [None]
